FAERS Safety Report 21573030 (Version 2)
Quarter: 2022Q4

REPORT INFORMATION
  Report Type: Spontaneous
  Country: TW (occurrence: TW)
  Receive Date: 20221109
  Receipt Date: 20221117
  Transmission Date: 20230113
  Serious: Yes (Other)
  Sender: FDA-Public Use
  Company Number: TW-PFIZER INC-PV202200097777

PATIENT
  Age: 14 Year
  Sex: Male

DRUGS (1)
  1. GENOTROPIN [Suspect]
     Active Substance: SOMATROPIN
     Indication: Growth hormone deficiency
     Dosage: 0.75 MG, QD
     Route: 058
     Dates: start: 2022, end: 20221101

REACTIONS (3)
  - Diabetes mellitus [Unknown]
  - Genital discomfort [Unknown]
  - Pruritus genital [Unknown]

NARRATIVE: CASE EVENT DATE: 20220101
